FAERS Safety Report 17646610 (Version 1)
Quarter: 2020Q2

REPORT INFORMATION
  Report Type: Spontaneous
  Country: US (occurrence: US)
  Receive Date: 20200408
  Receipt Date: 20200408
  Transmission Date: 20200713
  Serious: No
  Sender: FDA-Public Use
  Company Number: US-VERTEX PHARMACEUTICALS-2020-007845

PATIENT
  Age: 24 Year
  Sex: Female
  Weight: 50 kg

DRUGS (1)
  1. TRIKAFTA [Suspect]
     Active Substance: ELEXACAFTOR\IVACAFTOR\TEZACAFTOR
     Indication: CYSTIC FIBROSIS
     Dosage: 2 ORANGE TABS100 MG ELEXACAFTOR/ 50 MG TEZACAFTOR/ 75 MG IVACAFTOR AM ;1 BLUE TAB150MG IVACAFTOR PM
     Route: 048
     Dates: start: 20200323

REACTIONS (3)
  - Productive cough [Recovered/Resolved]
  - Musculoskeletal chest pain [Recovered/Resolved]
  - Increased viscosity of bronchial secretion [Unknown]

NARRATIVE: CASE EVENT DATE: 202003
